FAERS Safety Report 21139586 (Version 2)
Quarter: 2022Q3

REPORT INFORMATION
  Report Type: Spontaneous
  Country: US (occurrence: None)
  Receive Date: 20220727
  Receipt Date: 20220728
  Transmission Date: 20221027
  Serious: Yes (Death)
  Sender: FDA-Public Use
  Company Number: US-ROCHE-3148810

PATIENT
  Age: 82 Year
  Sex: Male

DRUGS (1)
  1. ESBRIET [Suspect]
     Active Substance: PIRFENIDONE
     Indication: Pulmonary fibrosis
     Dosage: 1 CAPSULE BY MOUTH 3 TIMES A DAY FOR 7 DAYS THEN 2 CAPSULES BY MOUTH 3 TIMES A DAY FOR 7 DAYS AND TH
     Route: 048
     Dates: start: 20220507

REACTIONS (1)
  - Death [Fatal]

NARRATIVE: CASE EVENT DATE: 20220610
